FAERS Safety Report 17564961 (Version 1)
Quarter: 2020Q1

REPORT INFORMATION
  Report Type: Spontaneous
  Country: US (occurrence: US)
  Receive Date: 20200320
  Receipt Date: 20200320
  Transmission Date: 20200409
  Serious: No
  Sender: FDA-Public Use
  Company Number: US-SA-2020SA066390

PATIENT
  Sex: Male

DRUGS (4)
  1. HYDROCORT [HYDROCORTISONE ACETATE] [Concomitant]
  2. DUPIXENT [Suspect]
     Active Substance: DUPILUMAB
     Indication: RESPIRATORY DISORDER
     Dosage: UNK
  3. AUGMENTED BETAMETHASONE DIPROPIONATE [Concomitant]
  4. LEVETIRACETAM. [Concomitant]
     Active Substance: LEVETIRACETAM

REACTIONS (2)
  - Product use in unapproved indication [Unknown]
  - Rash [Not Recovered/Not Resolved]
